FAERS Safety Report 5744618-2 (Version None)
Quarter: 2008Q2

REPORT INFORMATION
  Report Type: 
  Country: None (occurrence: None)
  Receive Date: 20080520
  Receipt Date: 20080314
  Transmission Date: 20081010
  Serious: No
  Sender: FDA-Public Use
  Company Number: US-ABBOTT-08P-163-0442654-00

PATIENT
  Sex: Female

DRUGS (3)
  1. AZMACORT [Suspect]
     Indication: ASTHMA
     Route: 055
     Dates: start: 20080301
  2. AZMACORT [Suspect]
     Indication: COUGH
  3. ALLERGY SHOTS [Concomitant]
     Indication: SEASONAL ALLERGY
     Route: 050

REACTIONS (1)
  - UNDERDOSE [None]
